FAERS Safety Report 24710832 (Version 1)
Quarter: 2024Q4

REPORT INFORMATION
  Report Type: Spontaneous
  Country: GB (occurrence: GB)
  Receive Date: 20241209
  Receipt Date: 20241209
  Transmission Date: 20250114
  Serious: Yes (Other)
  Sender: CIPLA
  Company Number: GB-MHRA-TPP8469703C4714547YC1732274264330

PATIENT

DRUGS (13)
  1. DONEPEZIL [Suspect]
     Active Substance: DONEPEZIL
     Indication: Ill-defined disorder
     Dosage: 10 MILLIGRAM, QD
     Route: 065
     Dates: start: 20240625
  2. NITROFURANTOIN [Concomitant]
     Active Substance: NITROFURANTOIN
     Indication: Ill-defined disorder
     Dosage: 1 DOSAGE FORM, BID (TAKE ONE TWICE DAILY FOR 3 DAYS)
     Route: 065
     Dates: start: 20240828, end: 20240903
  3. AMOXICILLIN\CLAVULANATE POTASSIUM [Concomitant]
     Active Substance: AMOXICILLIN\CLAVULANATE POTASSIUM
     Indication: Ill-defined disorder
     Dosage: 1 DOSAGE FORM, TID (TAKE ONE TABLET THREE TIMES A DAY FOR 5 DAYS)
     Route: 065
     Dates: start: 20241002, end: 20241007
  4. BUTYLSCOPOLAMINE BROMIDE [Concomitant]
     Active Substance: BUTYLSCOPOLAMINE BROMIDE
     Indication: Ill-defined disorder
     Dosage: 1 DOSAGE FORM, TID (TAKE ONE TABLET THREE TIMES/DAY)
     Route: 065
     Dates: start: 20241002, end: 20241009
  5. MIRABEGRON [Concomitant]
     Active Substance: MIRABEGRON
     Indication: Ill-defined disorder
     Dosage: 1 DOSAGE FORM DAILY (TAKE ONE DAILY)
     Route: 065
     Dates: start: 20241022
  6. AMDINOCILLIN PIVOXIL [Concomitant]
     Active Substance: AMDINOCILLIN PIVOXIL
     Indication: Ill-defined disorder
     Dosage: UNK (TAKE TWO TABLETS THEN TAKE ONE TABLET THREE TIME)
     Route: 065
     Dates: start: 20241119
  7. ATORVASTATIN [Concomitant]
     Active Substance: ATORVASTATIN
     Indication: Ill-defined disorder
     Dosage: 1 DOSAGE FORM DAILY (TAKE ONE DAILY)
     Route: 065
     Dates: start: 20190705
  8. XAILIN NIGHT [Concomitant]
     Indication: Ill-defined disorder
     Dosage: UNK (USE AS DIRECTED IN BOTH EYES AT NIGHT)
     Route: 065
     Dates: start: 20230308
  9. XAILIN TEARS [Concomitant]
     Indication: Ill-defined disorder
     Dosage: UNK (USE AS DIRECTED)
     Route: 065
     Dates: start: 20230308
  10. AMLODIPINE [Concomitant]
     Active Substance: AMLODIPINE BESYLATE
     Indication: Ill-defined disorder
     Dosage: 1 DOSAGE FORM, QD (TAKE ONE IN THE MORNING)
     Route: 065
     Dates: start: 20240307
  11. DONEPEZIL HYDROCHLORIDE [Concomitant]
     Active Substance: DONEPEZIL HYDROCHLORIDE
     Indication: Ill-defined disorder
     Dosage: 1 DOSAGE FORM (TAKE ONE DAILY)
     Route: 065
     Dates: start: 20240625
  12. ALVERINE CITRATE [Concomitant]
     Active Substance: ALVERINE CITRATE
     Indication: Ill-defined disorder
     Dosage: 1 DOSAGE FORM, TID (TAKE ONE CAPSULE 3 TIMES A DAY 20 MINUTES PRE MEAL)
     Route: 065
     Dates: start: 20240821
  13. SERTRALINE [Concomitant]
     Active Substance: SERTRALINE HYDROCHLORIDE
     Indication: Ill-defined disorder
     Dosage: 1 DOSAGE FORM, QD (TAKE ONE TABLET ONCE A DAY)
     Route: 065
     Dates: start: 20240926

REACTIONS (1)
  - Nightmare [Unknown]
